FAERS Safety Report 8027778-2 (Version None)
Quarter: 2012Q1

REPORT INFORMATION
  Report Type: 
  Country: None (occurrence: None)
  Receive Date: 20120104
  Receipt Date: 20111231
  Transmission Date: 20120608
  Serious: Yes (Hospitalization, Disabling)
  Sender: FDA-Public Use
  Company Number: AUR-APL-2011-06285

PATIENT
  Age: 75 Year
  Sex: Female
  Weight: 55 kg

DRUGS (10)
  1. SIMVASTATIN [Concomitant]
  2. MARCUMAR [Concomitant]
  3. OMEPRAZOLE [Concomitant]
  4. OLMESARTAN MEDOXOMIL [Concomitant]
  5. VOTUM PLUS 20/25 (BENICAR HCT) [Concomitant]
  6. DUROGESIC SMAT (FENTANYL) [Concomitant]
  7. GABAPENTIN [Suspect]
     Indication: NEUROPATHY PERIPHERAL
     Dosage: 1800 MG (600 MG, 3 IN 1 D), ORAL
     Route: 048
     Dates: end: 20110725
  8. OXYCODONE HCL [Concomitant]
  9. AMITRIPTYLINE HCL [Concomitant]
  10. METOPROLOL TARTRATE [Concomitant]

REACTIONS (1)
  - RHABDOMYOLYSIS [None]
